FAERS Safety Report 9105986 (Version 2)
Quarter: 2013Q2

REPORT INFORMATION
  Report Type: Spontaneous
  Country: CA (occurrence: CA)
  Receive Date: 20130220
  Receipt Date: 20130510
  Transmission Date: 20140414
  Serious: Yes (Hospitalization)
  Sender: FDA-Public Use
  Company Number: CA-ELI_LILLY_AND_COMPANY-CA201302003328

PATIENT
  Age: 90 Year
  Sex: Female
  Weight: 90 kg

DRUGS (12)
  1. FORTEO [Suspect]
     Indication: OSTEOPOROSIS
     Dosage: 20MCG, ONCE DAILY
     Route: 058
     Dates: start: 20110829, end: 20130110
  2. FORTEO [Suspect]
     Dosage: 20MCG,ONCE DAILY
     Route: 058
     Dates: start: 20130115
  3. AMLODIPINE [Concomitant]
  4. VENLAFAXINE [Concomitant]
  5. CALCIUM [Concomitant]
  6. PANTOPRAZOLE [Concomitant]
  7. EURO-D [Concomitant]
  8. ZYLOPRIM [Concomitant]
  9. ACTONEL [Concomitant]
  10. STATEX [Concomitant]
  11. NORGESIC /CAN/ [Concomitant]
  12. LAMOTRIGINE [Concomitant]

REACTIONS (1)
  - Influenza [Recovered/Resolved]
